FAERS Safety Report 15907659 (Version 2)
Quarter: 2019Q2

REPORT INFORMATION
  Report Type: Report from Study
  Country: US (occurrence: US)
  Receive Date: 20190204
  Receipt Date: 20190502
  Transmission Date: 20190711
  Serious: Yes (Hospitalization, Other)
  Sender: FDA-Public Use
  Company Number: US-GILEAD-2019-0388163

PATIENT
  Age: 49 Year
  Sex: Female

DRUGS (2)
  1. AZTREONAM LYSINE [Suspect]
     Active Substance: AZTREONAM LYSINE
     Indication: CYSTIC FIBROSIS
     Dosage: 75 MG, TID FOR 28 DAYS ON AND 28 DAYS OFF.
     Route: 055
     Dates: start: 20180626
  2. AZTREONAM LYSINE [Suspect]
     Active Substance: AZTREONAM LYSINE
     Dosage: 75 MG, TID FOR 28 DAYS ON AND 28 DAYS OFF. REPEAT.
     Route: 055
     Dates: start: 200701

REACTIONS (8)
  - Condition aggravated [Not Recovered/Not Resolved]
  - Lung transplant [Recovering/Resolving]
  - Pulmonary function test decreased [Unknown]
  - Cystic fibrosis [Recovering/Resolving]
  - Intentional product use issue [Recovered/Resolved]
  - Product dose omission [Recovered/Resolved]
  - Memory impairment [Unknown]
  - Pseudomonas infection [Recovering/Resolving]

NARRATIVE: CASE EVENT DATE: 200701
